FAERS Safety Report 23169471 (Version 1)
Quarter: 2023Q4

REPORT INFORMATION
  Report Type: Spontaneous
  Country: JP (occurrence: JP)
  Receive Date: 20231110
  Receipt Date: 20231110
  Transmission Date: 20240110
  Serious: Yes (Other)
  Sender: FDA-Public Use
  Company Number: JP-CHUGAI-2023037778AA

PATIENT
  Age: 69 Year
  Sex: Female

DRUGS (2)
  1. TECENTRIQ [Suspect]
     Active Substance: ATEZOLIZUMAB
     Indication: Breast cancer
     Dosage: UNK, SINGLE
     Route: 065
     Dates: start: 20200609, end: 20200609
  2. PACLITAXEL [Concomitant]
     Active Substance: PACLITAXEL
     Indication: Breast cancer
     Dosage: UNK

REACTIONS (2)
  - Hepatocellular injury [Not Recovered/Not Resolved]
  - Type 1 diabetes mellitus [Unknown]
